FAERS Safety Report 13864218 (Version 1)
Quarter: 2017Q3

REPORT INFORMATION
  Report Type: Spontaneous
  Country: US (occurrence: US)
  Receive Date: 20170811
  Receipt Date: 20170811
  Transmission Date: 20171127
  Serious: Yes (Other)
  Sender: FDA-Public Use
  Company Number: None

PATIENT
  Age: 55 Year
  Sex: Male
  Weight: 93.6 kg

DRUGS (20)
  1. XTAMPZA [Suspect]
     Active Substance: OXYCODONE
     Indication: PAIN
     Dosage: ?          QUANTITY:1 CAPSULE(S);?
     Route: 048
     Dates: start: 20170801, end: 20170809
  2. HUMALOG [Concomitant]
     Active Substance: INSULIN LISPRO
  3. CARAFATE [Concomitant]
     Active Substance: SUCRALFATE
  4. CELEBREX [Concomitant]
     Active Substance: CELECOXIB
  5. MIRALAX [Concomitant]
     Active Substance: POLYETHYLENE GLYCOL 3350
  6. EFFEXOR [Concomitant]
     Active Substance: VENLAFAXINE HYDROCHLORIDE
  7. PROSTHETIC ARM [Concomitant]
  8. COLACE [Concomitant]
     Active Substance: DOCUSATE SODIUM
  9. TOPROL XL [Concomitant]
     Active Substance: METOPROLOL SUCCINATE
  10. PRILOSEC [Concomitant]
     Active Substance: OMEPRAZOLE MAGNESIUM
  11. LIPITOR [Concomitant]
     Active Substance: ATORVASTATIN CALCIUM
  12. VOLTAREN [Concomitant]
     Active Substance: DICLOFENAC SODIUM
  13. METFORMIN [Concomitant]
     Active Substance: METFORMIN HYDROCHLORIDE
  14. LISINOPRIL. [Concomitant]
     Active Substance: LISINOPRIL
  15. LYRICA [Concomitant]
     Active Substance: PREGABALIN
  16. TRESIBA [Concomitant]
     Active Substance: INSULIN DEGLUDEC
  17. DOXEPIN [Concomitant]
     Active Substance: DOXEPIN
  18. ZANAFLEX [Concomitant]
     Active Substance: TIZANIDINE HYDROCHLORIDE
  19. OXYCODONE [Concomitant]
     Active Substance: OXYCODONE
  20. ASPIRIN. [Concomitant]
     Active Substance: ASPIRIN

REACTIONS (11)
  - Fatigue [None]
  - Dysphonia [None]
  - Somnolence [None]
  - Insomnia [None]
  - Decreased appetite [None]
  - Wheezing [None]
  - Abdominal pain upper [None]
  - Mood altered [None]
  - Faeces hard [None]
  - Muscle twitching [None]
  - Headache [None]

NARRATIVE: CASE EVENT DATE: 20170803
